FAERS Safety Report 5837471-X (Version None)
Quarter: 2008Q3

REPORT INFORMATION
  Report Type: 
  Country: None (occurrence: None)
  Receive Date: 20080807
  Receipt Date: 20080718
  Transmission Date: 20090109
  Serious: No
  Sender: FDA-Public Use
  Company Number: US-BOEHRINGER INGELHEIM GMBH, GERMANY-2008-BP-11406BP

PATIENT
  Sex: Male

DRUGS (7)
  1. MIRAPEX [Suspect]
     Indication: PARKINSON'S DISEASE
     Route: 048
     Dates: start: 20070101
  2. COMTAN [Concomitant]
  3. SINEMET [Concomitant]
  4. CARDIOLEVO [Concomitant]
  5. METFORMIN HCL [Concomitant]
  6. AMILORIDE HYDROCHLORIDE [Concomitant]
  7. ASPIRIN [Concomitant]

REACTIONS (6)
  - ABDOMINAL DISTENSION [None]
  - HEADACHE [None]
  - HYPERSOMNIA [None]
  - INCONTINENCE [None]
  - OEDEMA PERIPHERAL [None]
  - OVERDOSE [None]
